FAERS Safety Report 4659513-X (Version None)
Quarter: 2005Q2

REPORT INFORMATION
  Report Type: 
  Country: None (occurrence: None)
  Receive Date: 20050412
  Receipt Date: 20050301
  Transmission Date: 20051028
  Serious: No
  Sender: FDA-Public Use
  Company Number: 2005S1000034

PATIENT
  Age: 30 Year
  Sex: Female
  Weight: 50.9 kg

DRUGS (2)
  1. CUBICIN [Suspect]
     Indication: CELLULITIS STAPHYLOCOCCAL
     Dosage: 4 MG/KG; Q24H; IV
     Route: 042
     Dates: end: 20041220
  2. BENADRYL [Concomitant]

REACTIONS (4)
  - INFUSION SITE INFLAMMATION [None]
  - INJECTION SITE ABSCESS STERILE [None]
  - INJECTION SITE NECROSIS [None]
  - PHLEBITIS [None]
